FAERS Safety Report 5514757-X (Version None)
Quarter: 2007Q4

REPORT INFORMATION
  Report Type: 
  Country: None (occurrence: None)
  Receive Date: 20071113
  Receipt Date: 20071030
  Transmission Date: 20080405
  Serious: Yes (Other)
  Sender: FDA-Public Use
  Company Number: GB-RANBAXY-2007RR-11161

PATIENT

DRUGS (5)
  1. FLUOXETINE [Suspect]
     Indication: DEPRESSION
     Dosage: 20 MG, UNK
     Route: 048
     Dates: start: 20060203, end: 20060207
  2. DISPERSIBLE ASPIRIN 75MG TABLETS BP [Concomitant]
     Dosage: 75 MG, UNK
     Route: 048
     Dates: start: 20021201
  3. CORACTEN XL [Concomitant]
     Dosage: UNK
     Route: 048
     Dates: start: 20041201
  4. ACETAMINOPHEN [Concomitant]
     Dosage: 1 G, PRN
     Route: 048
  5. SIMVASTATIN 20MG TABLETS [Concomitant]
     Dosage: 20 MG, UNK
     Route: 048
     Dates: start: 20041124

REACTIONS (2)
  - CHEST PAIN [None]
  - PALPITATIONS [None]
